FAERS Safety Report 25043254 (Version 1)
Quarter: 2025Q1

REPORT INFORMATION
  Report Type: Spontaneous
  Country: US (occurrence: US)
  Receive Date: 20250305
  Receipt Date: 20250305
  Transmission Date: 20250409
  Serious: No
  Sender: ROCHE
  Company Number: US-ROCHE-10000220485

PATIENT
  Sex: Female

DRUGS (10)
  1. XOLAIR PFS [Suspect]
     Active Substance: OMALIZUMAB
     Indication: Urticaria
     Route: 058
  2. XOLAIR PFS [Suspect]
     Active Substance: OMALIZUMAB
  3. ASPIRIN CHE 81MG [Concomitant]
  4. DIAZEPAM TAB 10MG [Concomitant]
  5. LEVOTHYROXIN TAB 300MCG [Concomitant]
  6. LISINOPRIL TAB 40MG [Concomitant]
  7. METOPROLOL S TB2 [Concomitant]
  8. PANTOPRAZOLE SOL 40MG [Concomitant]
  9. TRAZODONE HC TAB 300MG [Concomitant]
  10. ZYRTEC ALLER CAP 10MG [Concomitant]

REACTIONS (1)
  - Injection site pain [Unknown]
